FAERS Safety Report 18448556 (Version 2)
Quarter: 2020Q4

REPORT INFORMATION
  Report Type: Spontaneous
  Country: MX (occurrence: MX)
  Receive Date: 20201030
  Receipt Date: 20201127
  Transmission Date: 20210114
  Serious: Yes (Life-Threatening, Hospitalization, Other)
  Sender: FDA-Public Use
  Company Number: MX-VIIV HEALTHCARE LIMITED-MX2020GSK208029

PATIENT
  Age: 21 Year
  Sex: Male

DRUGS (1)
  1. ABACAVIRSULPHATE+DOLUTEGRAVIR+LAMIVUDINE [Suspect]
     Active Substance: ABACAVIR SULFATE\DOLUTEGRAVIR SODIUM\LAMIVUDINE
     Indication: HIV INFECTION
     Dosage: UNK

REACTIONS (45)
  - Breath sounds abnormal [Recovered/Resolved]
  - Pancytopenia [Recovered/Resolved]
  - Blood urea increased [Recovered/Resolved]
  - Immune reconstitution inflammatory syndrome [Recovered/Resolved]
  - Tachycardia [Recovered/Resolved]
  - Acute kidney injury [Recovered/Resolved]
  - Lung infiltration [Recovered/Resolved]
  - Pneumocystis jirovecii pneumonia [Recovered/Resolved]
  - Hyperferritinaemia [Recovered/Resolved]
  - Aspartate aminotransferase increased [Recovered/Resolved]
  - Prothrombin time prolonged [Recovered/Resolved]
  - Activated partial thromboplastin time prolonged [Recovered/Resolved]
  - Fibrin D dimer increased [Recovered/Resolved]
  - Cachexia [Recovered/Resolved]
  - Abdominal pain [Recovered/Resolved]
  - Anogenital warts [Recovered/Resolved]
  - Hypofibrinogenaemia [Recovered/Resolved]
  - Blood albumin decreased [Recovered/Resolved]
  - Myalgia [Recovered/Resolved]
  - Tachypnoea [Recovered/Resolved]
  - Chills [Recovered/Resolved]
  - Asthenia [Recovered/Resolved]
  - Hepatosplenomegaly [Recovered/Resolved]
  - Sepsis [Recovered/Resolved]
  - Natural killer cell activity decreased [Recovered/Resolved]
  - Haematochezia [Recovered/Resolved]
  - Blood potassium increased [Recovered/Resolved]
  - Pyrexia [Recovered/Resolved]
  - Haemorrhage [Recovered/Resolved]
  - Blood lactate dehydrogenase increased [Recovered/Resolved]
  - Histoplasmosis disseminated [Recovered/Resolved]
  - Dehydration [Recovered/Resolved]
  - Lung consolidation [Recovered/Resolved]
  - Hypertriglyceridaemia [Recovered/Resolved]
  - Blood creatine increased [Recovered/Resolved]
  - Blood sodium decreased [Recovered/Resolved]
  - C-reactive protein increased [Recovered/Resolved]
  - Cytomegalovirus infection [Recovered/Resolved]
  - Haemophagocytic lymphohistiocytosis [Recovered/Resolved]
  - Dyspnoea [Recovered/Resolved]
  - Lymphadenopathy [Recovered/Resolved]
  - Hepatitis C [Recovered/Resolved]
  - Epistaxis [Recovered/Resolved]
  - Lip ulceration [Recovered/Resolved]
  - Diarrhoea [Recovered/Resolved]
